FAERS Safety Report 8407695 (Version 6)
Quarter: 2014Q2

REPORT INFORMATION
  Report Type: Spontaneous
  Country: GB (occurrence: GB)
  Receive Date: 20120215
  Receipt Date: 20140415
  Transmission Date: 20141212
  Serious: Yes (Hospitalization, Other)
  Sender: FDA-Public Use
  Company Number: PHFR2011GB05013

PATIENT
  Age: 50 Year
  Sex: Female
  Weight: 42 kg

DRUGS (4)
  1. CLOZARIL [Suspect]
     Indication: SCHIZOPHRENIA
     Dosage: 400 MG, DAILY
     Route: 048
     Dates: start: 20110613
  2. HYOSCINE [Concomitant]
     Indication: SALIVARY HYPERSECRETION
     Dosage: UNK
     Dates: start: 20110618
  3. OMEPRAZOLE [Concomitant]
     Indication: GASTRITIS
     Dosage: UNK UKN, UNK
  4. OMEPRAZOLE [Concomitant]
     Indication: NAUSEA

REACTIONS (11)
  - Weight decreased [Recovering/Resolving]
  - Haematocrit decreased [Recovered/Resolved]
  - Lymphocyte count decreased [Not Recovered/Not Resolved]
  - White blood cell count increased [Recovered/Resolved]
  - Blood alkaline phosphatase increased [Not Recovered/Not Resolved]
  - Decreased appetite [Recovering/Resolving]
  - Blood albumin decreased [Recovered/Resolved]
  - Neutrophil count increased [Recovered/Resolved]
  - Antipsychotic drug level decreased [Unknown]
  - Nausea [Recovering/Resolving]
  - Hypotension [Recovering/Resolving]
